FAERS Safety Report 8390511-9 (Version None)
Quarter: 2012Q2

REPORT INFORMATION
  Report Type: 
  Country: None (occurrence: None)
  Receive Date: 20120522
  Receipt Date: 20120516
  Transmission Date: 20120825
  Serious: Yes (Death, Life-Threatening, Other)
  Sender: FDA-Public Use
  Company Number: 2012SP012829

PATIENT
  Age: 74 Year
  Sex: Female
  Weight: 44.5 kg

DRUGS (6)
  1. TEMODAL [Suspect]
     Indication: GLIOBLASTOMA MULTIFORME
     Dosage: 100 MG;QD;INDRP
     Route: 041
     Dates: start: 20110525, end: 20110529
  2. TEMODAL [Suspect]
     Indication: GLIOBLASTOMA MULTIFORME
     Dosage: 100 MG;QD;INDRP
     Route: 041
     Dates: start: 20110221, end: 20110403
  3. TRIMETHOPRIM [Concomitant]
  4. BETAMETHASONE [Suspect]
     Indication: BRAIN NEOPLASM
     Dosage: PO
     Route: 048
     Dates: start: 20110215, end: 20110303
  5. COTRIM [Concomitant]
  6. FAMOTIDINE [Concomitant]

REACTIONS (3)
  - BRAIN NEOPLASM [None]
  - DIABETES MELLITUS [None]
  - NEOPLASM PROGRESSION [None]
